FAERS Safety Report 20430764 (Version 2)
Quarter: 2022Q1

REPORT INFORMATION
  Report Type: Report from Study
  Country: FR (occurrence: FR)
  Receive Date: 20220204
  Receipt Date: 20220208
  Transmission Date: 20220424
  Serious: Yes (Other)
  Sender: FDA-Public Use
  Company Number: FR-SERVIER-S21004440

PATIENT

DRUGS (12)
  1. PEGASPARGASE [Suspect]
     Active Substance: PEGASPARGASE
     Indication: Acute lymphocytic leukaemia
     Dosage: 3130 IU, QD,
     Route: 042
     Dates: start: 20190204
  2. PEGASPARGASE [Suspect]
     Active Substance: PEGASPARGASE
     Dosage: 3130 IU, ON D6
     Route: 042
     Dates: start: 20190612
  3. CYTARABINE [Suspect]
     Active Substance: CYTARABINE
     Indication: Acute lymphocytic leukaemia
     Dosage: 2.5 MG, ON D1 AND D2
     Route: 042
     Dates: start: 20190317
  4. ETOPOSIDE [Suspect]
     Active Substance: ETOPOSIDE
     Indication: Acute lymphocytic leukaemia
     Dosage: 188 MG, ON D3, D4 AND D5
     Route: 042
     Dates: start: 20190612
  5. DEXAMETHASONE [Suspect]
     Active Substance: DEXAMETHASONE
     Indication: Acute lymphocytic leukaemia
     Dosage: 12 MG ON D6
     Route: 042
     Dates: start: 20190131
  6. DEXAMETHASONE [Suspect]
     Active Substance: DEXAMETHASONE
     Dosage: 25 MG, D1 TO D5
     Route: 042
     Dates: start: 20190612, end: 20190705
  7. DEXAMETHASONE [Suspect]
     Active Substance: DEXAMETHASONE
     Dosage: 12 MG, ON D6
     Route: 048
  8. MITOXANTRONE HYDROCHLORIDE [Suspect]
     Active Substance: MITOXANTRONE HYDROCHLORIDE
     Indication: Acute lymphocytic leukaemia
     Dosage: 10 MG, ON D3 AND D4
     Route: 042
     Dates: start: 20190612
  9. TN UNSPECIFIED [Concomitant]
     Indication: Acute lymphocytic leukaemia
     Dosage: 12 MG, ON D5
     Route: 037
     Dates: start: 20190205
  10. TN UNSPECIFIED [Concomitant]
     Dosage: 12 MG, ON D5
     Route: 037
     Dates: start: 20190612
  11. TN UNSPECIFIED [Concomitant]
     Indication: Acute lymphocytic leukaemia
     Dosage: 15 MG, ON D5
     Route: 037
     Dates: start: 20190612
  12. TN UNSPECIFIED [Concomitant]
     Indication: Acute lymphocytic leukaemia
     Dosage: 30 MG, ON D5
     Route: 037
     Dates: start: 20190612

REACTIONS (1)
  - Sepsis [Recovered/Resolved]

NARRATIVE: CASE EVENT DATE: 20190621
